FAERS Safety Report 17913195 (Version 7)
Quarter: 2020Q3

REPORT INFORMATION
  Report Type: Spontaneous
  Country: US (occurrence: US)
  Receive Date: 20200618
  Receipt Date: 20200817
  Transmission Date: 20201103
  Serious: Yes (Other)
  Sender: FDA-Public Use
  Company Number: US-GLAXOSMITHKLINE-US2020AMR103276

PATIENT
  Sex: Female

DRUGS (5)
  1. ZEJULA [Suspect]
     Active Substance: NIRAPARIB
     Indication: OVARIAN CANCER
     Dosage: 100 MG, QD
     Dates: start: 20200603
  2. ZEJULA [Suspect]
     Active Substance: NIRAPARIB
     Dosage: 200 MG, QD
     Dates: start: 20200630, end: 20200812
  3. ZEJULA [Suspect]
     Active Substance: NIRAPARIB
     Indication: MALIGNANT ASCITES
     Dosage: 2 DF, QD (100 MG, 2)
     Dates: start: 20200608
  4. ZEJULA [Suspect]
     Active Substance: NIRAPARIB
     Dosage: 2 DF, QD,100MG
  5. ZEJULA [Suspect]
     Active Substance: NIRAPARIB
     Dosage: 3 DF, QD,100MG

REACTIONS (16)
  - Headache [Unknown]
  - Abdominal pain upper [Unknown]
  - Constipation [Unknown]
  - Renal disorder [Unknown]
  - Peripheral swelling [Unknown]
  - Urinary tract infection [Unknown]
  - Infection [Unknown]
  - Underdose [Unknown]
  - Blood pressure increased [Unknown]
  - Kidney infection [Unknown]
  - Sleep disorder [Unknown]
  - Heart rate increased [Not Recovered/Not Resolved]
  - Erythema [Unknown]
  - Rash macular [Unknown]
  - Dyspnoea [Unknown]
  - Platelet count decreased [Unknown]
